FAERS Safety Report 5685737-9 (Version None)
Quarter: 2008Q1

REPORT INFORMATION
  Report Type: 
  Country: None (occurrence: None)
  Receive Date: 20080328
  Receipt Date: 20070910
  Transmission Date: 20080703
  Serious: No
  Sender: FDA-Public Use
  Company Number: US-BAYER-US-2007-034165

PATIENT
  Age: 41 Year
  Sex: Female
  Weight: 64 kg

DRUGS (2)
  1. MIRENA [Suspect]
     Indication: CONTRACEPTION
     Route: 015
     Dates: start: 20050301
  2. CLARITIN [Concomitant]
     Indication: SEASONAL ALLERGY

REACTIONS (6)
  - AMENORRHOEA [None]
  - DERMATITIS CONTACT [None]
  - PROCEDURAL DIZZINESS [None]
  - PROCEDURAL PAIN [None]
  - VULVOVAGINAL BURNING SENSATION [None]
  - VULVOVAGINAL PRURITUS [None]
